FAERS Safety Report 9528774 (Version 1)
Quarter: 2013Q1

REPORT INFORMATION
  Report Type: Spontaneous
  Country: US (occurrence: None)
  Receive Date: 20130329
  Receipt Date: 20130329
  Transmission Date: 20140127
  Serious: No
  Sender: FDA-Public Use
  Company Number: 1000041951

PATIENT
  Sex: Male

DRUGS (4)
  1. LINZESS (LINACLOTIDE) [Suspect]
     Dates: start: 20130123
  2. ASPIRIN (ACETYLSAL-ICYLIC ACID) (ACETYLSALIC-YLIC ACID) [Concomitant]
  3. PLAVIX (CLOPIDOGREL BISULFATE) (CLOPIDOGREL BISULFATE) [Concomitant]
  4. STATIN (NOS) (STATIN (NOS) ) (STATIN (NOS)) [Concomitant]

REACTIONS (1)
  - Feeling abnormal [None]
